FAERS Safety Report 14621456 (Version 1)
Quarter: 2018Q1

REPORT INFORMATION
  Report Type: Spontaneous
  Country: ES (occurrence: ES)
  Receive Date: 20180310
  Receipt Date: 20180310
  Transmission Date: 20180509
  Serious: Yes (Other)
  Sender: FDA-Public Use
  Company Number: ES-AUROBINDO-AUR-APL-2018-012421

PATIENT
  Age: 58 Year
  Sex: Female

DRUGS (3)
  1. PIPERACILLIN AND TAZOBACTAM [Suspect]
     Active Substance: PIPERACILLIN SODIUM\TAZOBACTAM SODIUM
     Indication: EMPYEMA
     Dosage: UNK ()
     Route: 042
  2. CLINDAMYCIN PHOSPHATE. [Suspect]
     Active Substance: CLINDAMYCIN PHOSPHATE
     Indication: EMPYEMA
     Dosage: 600 MG, 3X/DAY (EVERY 8 HOURS)
     Route: 042
  3. MEROPENEM. [Suspect]
     Active Substance: MEROPENEM
     Indication: EMPYEMA
     Dosage: 1 G, 3X/DAY (EVERY 8 HOURS)
     Route: 042

REACTIONS (2)
  - Drug ineffective [Unknown]
  - Drug resistance [Unknown]
